FAERS Safety Report 9371753 (Version 1)
Quarter: 2013Q2

REPORT INFORMATION
  Report Type: Spontaneous
  Country: AU (occurrence: AU)
  Receive Date: 20130627
  Receipt Date: 20130627
  Transmission Date: 20140414
  Serious: Yes (Hospitalization, Congenital Anomaly)
  Sender: FDA-Public Use
  Company Number: AU-SANOFI-AVENTIS-2013SA061932

PATIENT
  Age: 1 Day
  Sex: Male

DRUGS (11)
  1. ENOXAPARIN SODIUM [Suspect]
     Indication: FOETAL EXPOSURE TIMING UNSPECIFIED
     Route: 064
  2. AMOXICILLIN [Suspect]
     Indication: FOETAL EXPOSURE TIMING UNSPECIFIED
     Route: 064
  3. AMPICILLIN [Suspect]
     Indication: FOETAL EXPOSURE TIMING UNSPECIFIED
     Route: 064
  4. CEFTRIAXONE [Suspect]
     Indication: FOETAL EXPOSURE TIMING UNSPECIFIED
     Route: 064
  5. CEPHALEXIN [Suspect]
     Indication: FOETAL EXPOSURE TIMING UNSPECIFIED
     Route: 064
  6. FLUCONAZOLE [Suspect]
     Indication: FOETAL EXPOSURE TIMING UNSPECIFIED
     Route: 064
  7. GENTAMICIN SULFATE [Suspect]
     Indication: FOETAL EXPOSURE TIMING UNSPECIFIED
     Route: 064
  8. HEPARIN SODIUM [Suspect]
     Indication: FOETAL EXPOSURE TIMING UNSPECIFIED
     Route: 064
  9. MEROPENEM [Suspect]
     Indication: FOETAL EXPOSURE TIMING UNSPECIFIED
     Route: 064
  10. PARACETAMOL [Suspect]
     Indication: FOETAL EXPOSURE TIMING UNSPECIFIED
     Route: 064
  11. RANITIDINE [Suspect]
     Indication: FOETAL EXPOSURE TIMING UNSPECIFIED
     Route: 064

REACTIONS (9)
  - Congenital multiplex arthrogryposis [Unknown]
  - Foetal exposure during pregnancy [Unknown]
  - Cerebral palsy [Unknown]
  - Diplegia [Unknown]
  - Joint contracture [Unknown]
  - Joint dislocation [Unknown]
  - Otitis media [Unknown]
  - Talipes [Unknown]
  - Conductive deafness [Unknown]
